FAERS Safety Report 19956233 (Version 4)
Quarter: 2025Q1

REPORT INFORMATION
  Report Type: Spontaneous
  Country: US (occurrence: US)
  Receive Date: 20211014
  Receipt Date: 20250306
  Transmission Date: 20250408
  Serious: Yes (Hospitalization, Other)
  Sender: PFIZER
  Company Number: US-PFIZER INC-2021384024

PATIENT
  Age: 57 Year
  Sex: Female

DRUGS (7)
  1. IBRANCE [Suspect]
     Active Substance: PALBOCICLIB
     Indication: Breast cancer metastatic
  2. IBRANCE [Suspect]
     Active Substance: PALBOCICLIB
  3. IBRANCE [Suspect]
     Active Substance: PALBOCICLIB
     Dosage: 100 MG, DAILY
     Dates: start: 201610, end: 202502
  4. IBRANCE [Suspect]
     Active Substance: PALBOCICLIB
     Dates: start: 20180801
  5. IBRANCE [Suspect]
     Active Substance: PALBOCICLIB
     Dates: start: 20180828
  6. IBRANCE [Suspect]
     Active Substance: PALBOCICLIB
     Dates: start: 20190515
  7. IBRANCE [Suspect]
     Active Substance: PALBOCICLIB
     Dates: start: 20211228

REACTIONS (9)
  - Vomiting [Unknown]
  - Neutropenia [Recovering/Resolving]
  - White blood cell count decreased [Recovering/Resolving]
  - Blood pressure increased [Unknown]
  - Muscle spasms [Unknown]
  - Pain [Unknown]
  - Alopecia [Unknown]
  - Gait disturbance [Unknown]
  - Off label use [Unknown]

NARRATIVE: CASE EVENT DATE: 20211201
